FAERS Safety Report 4698643-3 (Version None)
Quarter: 2005Q2

REPORT INFORMATION
  Report Type: 
  Country: None (occurrence: None)
  Receive Date: 20050622
  Receipt Date: 20050607
  Transmission Date: 20051028
  Serious: Yes (Hospitalization)
  Sender: FDA-Public Use
  Company Number: 04-000195

PATIENT
  Age: 34 Year
  Sex: Female
  Weight: 63.5 kg

DRUGS (4)
  1. DORYX [Suspect]
     Indication: ACNE
     Dosage: 100 MG, QD, ORAL
     Route: 048
     Dates: start: 20010701, end: 20020701
  2. DORYX [Suspect]
     Indication: ACNE
     Dosage: 100 MG, QD, ORAL
     Route: 048
     Dates: start: 20020701, end: 20040306
  3. ALDACTONE [Concomitant]
  4. BUSPAR [Concomitant]

REACTIONS (2)
  - HYPOAESTHESIA [None]
  - PERICARDITIS [None]
